FAERS Safety Report 7184261-4 (Version None)
Quarter: 2010Q4

REPORT INFORMATION
  Report Type: 
  Country: None (occurrence: None)
  Receive Date: 20101222
  Receipt Date: 20101208
  Transmission Date: 20110411
  Serious: Yes (Other)
  Sender: FDA-Public Use
  Company Number: PHHY2010CA83736

PATIENT
  Sex: Female

DRUGS (1)
  1. TASIGNA [Suspect]
     Dosage: UNK
     Dates: start: 20100801

REACTIONS (5)
  - HYPERBILIRUBINAEMIA [None]
  - HYPOAESTHESIA [None]
  - PALLOR [None]
  - RAYNAUD'S PHENOMENON [None]
  - SENSORY LOSS [None]
